FAERS Safety Report 4427946-2 (Version None)
Quarter: 2004Q3

REPORT INFORMATION
  Report Type: 
  Country: None (occurrence: None)
  Receive Date: 20040813
  Receipt Date: 20040802
  Transmission Date: 20050211
  Serious: Yes (Life-Threatening)
  Sender: FDA-Public Use
  Company Number: MESA 2004-013

PATIENT
  Age: 74 Year
  Sex: Female

DRUGS (6)
  1. CANASA [Suspect]
     Indication: COLITIS ULCERATIVE
     Dosage: 1 SUPPOSITORY IR HS EVERY 3 DAYS; SEVERAL YEARS
     Route: 054
  2. CANASA [Suspect]
     Indication: PROCTITIS ULCERATIVE
     Dosage: 1 SUPPOSITORY IR HS EVERY 3 DAYS; SEVERAL YEARS
     Route: 054
  3. FOSAMAX [Concomitant]
  4. TRIAMTERENE AND HYDROCHLOROTHIAZIDE [Concomitant]
  5. ASPIRIN [Concomitant]
  6. LIPITOR [Concomitant]

REACTIONS (3)
  - ATRIAL FIBRILLATION [None]
  - ATRIAL FLUTTER [None]
  - PALPITATIONS [None]
